FAERS Safety Report 10856171 (Version 1)
Quarter: 2015Q1

REPORT INFORMATION
  Report Type: Spontaneous
  Country: US (occurrence: US)
  Receive Date: 20150223
  Receipt Date: 20150223
  Transmission Date: 20150721
  Serious: No
  Sender: FDA-Public Use
  Company Number: US-009507513-1502USA009080

PATIENT
  Sex: Female
  Weight: 53.61 kg

DRUGS (2)
  1. NEXPLANON [Suspect]
     Active Substance: ETONOGESTREL
     Indication: CONTRACEPTION
     Dosage: 1 ROD (1 DF)/ 3 YEARS
     Route: 059
     Dates: start: 20140110, end: 20150205
  2. AMOXICILLIN. [Concomitant]
     Active Substance: AMOXICILLIN

REACTIONS (6)
  - Menorrhagia [Unknown]
  - Anxiety [Unknown]
  - Mood altered [Unknown]
  - Depression [Unknown]
  - Product quality issue [Unknown]
  - Device breakage [Unknown]
